FAERS Safety Report 23917958 (Version 3)
Quarter: 2024Q2

REPORT INFORMATION
  Report Type: Report from Study
  Country: US (occurrence: US)
  Receive Date: 20240530
  Receipt Date: 20240618
  Transmission Date: 20240716
  Serious: Yes (Hospitalization, Other)
  Sender: FDA-Public Use
  Company Number: US-UCBSA-2024026132

PATIENT
  Age: 23 Year
  Sex: Male

DRUGS (1)
  1. FINTEPLA [Suspect]
     Active Substance: FENFLURAMINE
     Indication: Lennox-Gastaut syndrome
     Dosage: 6 MILLILITER, 2X/DAY (BID) G-TUBE
     Dates: start: 20240509, end: 20240523

REACTIONS (13)
  - Blood pressure increased [Recovering/Resolving]
  - Urinary tract infection [Not Recovered/Not Resolved]
  - Pneumonia [Not Recovered/Not Resolved]
  - Intestinal obstruction [Not Recovered/Not Resolved]
  - Vomiting [Not Recovered/Not Resolved]
  - Serotonin syndrome [Not Recovered/Not Resolved]
  - Body temperature increased [Not Recovered/Not Resolved]
  - Urinary retention [Not Recovered/Not Resolved]
  - Seizure [Recovering/Resolving]
  - Dystonia [Recovering/Resolving]
  - Secretion discharge [Recovering/Resolving]
  - Pneumonia aspiration [Unknown]
  - Sepsis [Unknown]

NARRATIVE: CASE EVENT DATE: 20240501
